FAERS Safety Report 25088071 (Version 1)
Quarter: 2025Q1

REPORT INFORMATION
  Report Type: Report from Study
  Country: ZA (occurrence: ZA)
  Receive Date: 20250318
  Receipt Date: 20250318
  Transmission Date: 20250409
  Serious: Yes (Hospitalization, Other)
  Sender: BIOVITRUM
  Company Number: ZA-AstraZeneca-CH-00823479A

PATIENT
  Sex: Female

DRUGS (1)
  1. PALIVIZUMAB [Suspect]
     Active Substance: PALIVIZUMAB
     Indication: Antiviral prophylaxis
     Route: 030

REACTIONS (2)
  - Necrotising colitis [Unknown]
  - Patent ductus arteriosus [Unknown]
